FAERS Safety Report 16878228 (Version 1)
Quarter: 2019Q4

REPORT INFORMATION
  Report Type: Spontaneous
  Country: IT (occurrence: IT)
  Receive Date: 20191002
  Receipt Date: 20191002
  Transmission Date: 20200122
  Serious: Yes (Other)
  Sender: FDA-Public Use
  Company Number: PHHY2019IT226064

PATIENT
  Age: 22 Year
  Sex: Male

DRUGS (2)
  1. TACROLIMUS. [Suspect]
     Active Substance: TACROLIMUS
     Indication: IMMUNOSUPPRESSANT DRUG THERAPY
  2. TACROLIMUS. [Suspect]
     Active Substance: TACROLIMUS
     Indication: LIVER TRANSPLANT
     Dosage: UNK
     Route: 065

REACTIONS (9)
  - Haemoptysis [Unknown]
  - Tachycardia [Unknown]
  - Mycobacterium avium complex infection [Unknown]
  - Dyspnoea [Unknown]
  - Pallor [Unknown]
  - Transplant rejection [Unknown]
  - Pyrexia [Unknown]
  - Drug interaction [Unknown]
  - Blood pressure decreased [Unknown]
